FAERS Safety Report 9004001 (Version 1)
Quarter: 2013Q1

REPORT INFORMATION
  Report Type: Spontaneous
  Country: US (occurrence: US)
  Receive Date: 20130108
  Receipt Date: 20130108
  Transmission Date: 20140127
  Serious: Yes (Hospitalization)
  Sender: FDA-Public Use
  Company Number: US-009507513-1301USA002029

PATIENT
  Age: 47 Year
  Sex: Female

DRUGS (6)
  1. MONTELUKAST SODIUM [Suspect]
     Route: 048
  2. LEVOTHYROXINE SODIUM [Suspect]
     Route: 048
  3. FENOFIBRATE [Suspect]
     Route: 048
  4. COKENZEN [Suspect]
     Route: 048
  5. RABEPRAZOLE SODIUM [Suspect]
     Route: 048
  6. AMLOR [Suspect]
     Route: 048

REACTIONS (1)
  - Haemolytic anaemia [Unknown]
